FAERS Safety Report 4665129-1 (Version None)
Quarter: 2005Q2

REPORT INFORMATION
  Report Type: 
  Country: None (occurrence: None)
  Receive Date: 20050517
  Receipt Date: 20050509
  Transmission Date: 20051028
  Serious: Yes (Other)
  Sender: FDA-Public Use
  Company Number: 2005066564

PATIENT
  Age: 51 Year
  Sex: Female

DRUGS (4)
  1. NORVASC [Suspect]
     Indication: ILL-DEFINED DISORDER
     Dosage: 5 MG (DAILY), ORAL
     Route: 048
  2. CARDENALIN                            (DOXAZOSIN) [Concomitant]
  3. BLOPRESS                         (CANDESARTAN CILEXETIL) [Concomitant]
  4. NATRIX                (INDAPAMIDE) [Concomitant]

REACTIONS (2)
  - ADRENAL NEOPLASM [None]
  - GINGIVAL OEDEMA [None]
